FAERS Safety Report 24803620 (Version 2)
Quarter: 2025Q1

REPORT INFORMATION
  Report Type: Spontaneous
  Country: US (occurrence: US)
  Receive Date: 20250103
  Receipt Date: 20250313
  Transmission Date: 20250408
  Serious: Yes (Other)
  Sender: SANDOZ
  Company Number: US-002147023-NVSC2024US244958

PATIENT
  Age: 62 Year
  Sex: Female

DRUGS (5)
  1. ALLOPURINOL [Suspect]
     Active Substance: ALLOPURINOL
     Indication: Product used for unknown indication
     Route: 065
  2. GLEEVEC [Suspect]
     Active Substance: IMATINIB MESYLATE
     Route: 065
  3. GLEEVEC [Suspect]
     Active Substance: IMATINIB MESYLATE
     Indication: Chronic myeloid leukaemia
     Route: 065
  4. HYDROXYUREA [Suspect]
     Active Substance: HYDROXYUREA
     Indication: Product used for unknown indication
     Route: 065
  5. SPRYCEL [Concomitant]
     Active Substance: DASATINIB
     Indication: Product used for unknown indication
     Route: 065

REACTIONS (22)
  - Neuropathy peripheral [Unknown]
  - Chylothorax [Unknown]
  - Blast cell crisis [Unknown]
  - Genital ulceration [Unknown]
  - Skin ulcer [Unknown]
  - Panic disorder [Unknown]
  - Pruritus [Unknown]
  - Bone pain [Unknown]
  - Abdominal discomfort [Unknown]
  - Pleural effusion [Unknown]
  - Burning sensation [Unknown]
  - Pain [Unknown]
  - Arthritis [Unknown]
  - Back pain [Unknown]
  - Fatigue [Unknown]
  - Blood disorder [Unknown]
  - Nausea [Unknown]
  - Hypertension [Unknown]
  - Stomatitis [Unknown]
  - Diarrhoea [Unknown]
  - Vomiting [Unknown]
  - Drug ineffective [Unknown]
